FAERS Safety Report 7606376-6 (Version None)
Quarter: 2011Q3

REPORT INFORMATION
  Report Type: 
  Country: None (occurrence: None)
  Receive Date: 20110705
  Receipt Date: 20110621
  Transmission Date: 20111222
  Serious: Yes (Other)
  Sender: FDA-Public Use
  Company Number: 2011P1007141

PATIENT
  Age: 50 Year
  Sex: Male
  Weight: 107.9561 kg

DRUGS (3)
  1. CLONAZEPAM [Concomitant]
  2. METFORMIN HCL [Concomitant]
  3. GLYBURIDE [Suspect]
     Indication: TYPE 2 DIABETES MELLITUS
     Dosage: 2.5 MG; BID; PO
     Route: 048
     Dates: start: 20090101

REACTIONS (7)
  - NAUSEA [None]
  - PRODUCT LABEL ISSUE [None]
  - PRODUCT QUALITY ISSUE [None]
  - EATING DISORDER [None]
  - WRONG DRUG ADMINISTERED [None]
  - BLOOD GLUCOSE INCREASED [None]
  - THROAT CANCER [None]
